FAERS Safety Report 4492023-1 (Version None)
Quarter: 2004Q4

REPORT INFORMATION
  Report Type: 
  Country: None (occurrence: None)
  Receive Date: 20041029
  Receipt Date: 20041005
  Transmission Date: 20050328
  Serious: No
  Sender: FDA-Public Use
  Company Number: PHNU2004DE03427

PATIENT
  Age: 43 Year
  Sex: Female

DRUGS (3)
  1. LIORESAL [Suspect]
     Indication: MUSCLE SPASTICITY
     Dosage: 750 NG, QD
     Route: 037
     Dates: start: 20030101, end: 20041001
  2. LIORESAL [Suspect]
     Indication: MUSCLE SPASTICITY
     Dosage: 750 NG, QD
     Route: 037
     Dates: start: 20041005
  3. BETA BLOCKING AGENTS (NO INGREDIENTS/SUBSTANCES) [Concomitant]

REACTIONS (3)
  - DRUG WITHDRAWAL SYNDROME [None]
  - MEDICATION ERROR [None]
  - PYREXIA [None]
